FAERS Safety Report 7692750-9 (Version None)
Quarter: 2011Q3

REPORT INFORMATION
  Report Type: 
  Country: None (occurrence: None)
  Receive Date: 20110819
  Receipt Date: 20110809
  Transmission Date: 20111222
  Serious: Yes (Hospitalization)
  Sender: FDA-Public Use
  Company Number: FR-JNJFOC-20110805404

PATIENT
  Age: 78 Year
  Sex: Female

DRUGS (10)
  1. MORPHINE SULFATE [Interacting]
     Route: 048
  2. NEBIVOLOL HCL [Concomitant]
     Route: 065
  3. LASIX [Concomitant]
     Route: 065
  4. LEVOTHYROXINE SODIUM [Concomitant]
     Route: 065
  5. POTASSIUM CHLORIDE [Concomitant]
     Route: 065
  6. DURAGESIC-100 [Suspect]
     Route: 062
  7. FELODIPINE [Concomitant]
     Route: 065
  8. DURAGESIC-100 [Suspect]
     Indication: PRODUCT USED FOR UNKNOWN INDICATION
     Route: 062
  9. MORPHINE SULFATE [Interacting]
     Indication: PRODUCT USED FOR UNKNOWN INDICATION
     Route: 048
  10. ATARAX [Concomitant]
     Route: 065

REACTIONS (7)
  - ASTHENIA [None]
  - HYPOTENSION [None]
  - PSYCHOMOTOR SKILLS IMPAIRED [None]
  - DRUG INTERACTION [None]
  - EATING DISORDER [None]
  - BACK PAIN [None]
  - DIZZINESS [None]
